FAERS Safety Report 23983597 (Version 2)
Quarter: 2024Q4

REPORT INFORMATION
  Report Type: Spontaneous
  Country: US (occurrence: US)
  Receive Date: 20240618
  Receipt Date: 20241017
  Transmission Date: 20250115
  Serious: No
  Sender: SANOFI AVENTIS
  Company Number: US-SA-SAC20240613001094

PATIENT
  Sex: Female

DRUGS (13)
  1. DUPIXENT [Suspect]
     Active Substance: DUPILUMAB
     Indication: Asthma
     Dosage: 600 MG, 1X
     Route: 058
  2. DUPIXENT [Suspect]
     Active Substance: DUPILUMAB
     Dosage: 300 MG, QOW
     Route: 058
  3. ALBUTEROL SULFATE [Concomitant]
     Active Substance: ALBUTEROL SULFATE
  4. ALPRAZOLAM [Concomitant]
     Active Substance: ALPRAZOLAM
  5. BENZTROPINE [Concomitant]
     Active Substance: BENZTROPINE
  6. BUMETANIDE [Concomitant]
     Active Substance: BUMETANIDE
  7. DILTIAZEM HYDROCHLORIDE [Concomitant]
     Active Substance: DILTIAZEM HYDROCHLORIDE
  8. LINZESS [Concomitant]
     Active Substance: LINACLOTIDE
  9. POTASSIUM [Concomitant]
     Active Substance: POTASSIUM
  10. ROSUVASTATIN [Concomitant]
     Active Substance: ROSUVASTATIN
  11. TRELEGY ELLIPTA [Concomitant]
     Active Substance: FLUTICASONE FUROATE\UMECLIDINIUM BROMIDE\VILANTEROL TRIFENATATE
  12. ZIPRASIDONE [Concomitant]
     Active Substance: ZIPRASIDONE
  13. FLONASE ALLERGY RELIEF [Concomitant]
     Active Substance: FLUTICASONE PROPIONATE

REACTIONS (2)
  - Myalgia [Not Recovered/Not Resolved]
  - Arthralgia [Unknown]
